FAERS Safety Report 5269320-5 (Version None)
Quarter: 2007Q1

REPORT INFORMATION
  Report Type: 
  Country: None (occurrence: None)
  Receive Date: 20070319
  Receipt Date: 20070307
  Transmission Date: 20070707
  Serious: Yes (Hospitalization, Other)
  Sender: FDA-Public Use
  Company Number: US-PFIZER INC-2007010375

PATIENT
  Sex: Male
  Weight: 106.6 kg

DRUGS (2)
  1. BEXTRA [Suspect]
     Indication: OSTEOARTHRITIS
  2. CELEBREX [Suspect]
     Indication: OSTEOARTHRITIS
     Dates: start: 20000621, end: 20020314

REACTIONS (6)
  - AMNESIA [None]
  - ANXIETY [None]
  - ARTERIOSCLEROSIS [None]
  - CARDIAC DISORDER [None]
  - MYOCARDIAL INFARCTION [None]
  - PANIC ATTACK [None]
